FAERS Safety Report 18753691 (Version 1)
Quarter: 2021Q1

REPORT INFORMATION
  Report Type: Spontaneous
  Country: IT (occurrence: IT)
  Receive Date: 20210118
  Receipt Date: 20210118
  Transmission Date: 20210419
  Serious: Yes (Other)
  Sender: FDA-Public Use
  Company Number: IT-JNJFOC-20210126362

PATIENT
  Age: 45 Year
  Sex: Male
  Weight: 80 kg

DRUGS (2)
  1. COCAINE [Suspect]
     Active Substance: COCAINE
     Indication: PRODUCT USED FOR UNKNOWN INDICATION
     Route: 065
  2. HALDOL [Suspect]
     Active Substance: HALOPERIDOL
     Indication: PRODUCT USED FOR UNKNOWN INDICATION
     Route: 065
     Dates: start: 20210115

REACTIONS (2)
  - Intentional self-injury [Unknown]
  - Sopor [Unknown]

NARRATIVE: CASE EVENT DATE: 20210115
